FAERS Safety Report 4645253-X (Version None)
Quarter: 2005Q2

REPORT INFORMATION
  Report Type: 
  Country: None (occurrence: None)
  Receive Date: 20050331
  Receipt Date: 20041229
  Transmission Date: 20051028
  Serious: No
  Sender: FDA-Public Use
  Company Number: 04P-163-0273748-00

PATIENT
  Age: 82 Year
  Sex: Female
  Weight: 65.7716 kg

DRUGS (10)
  1. HUMIRA [Suspect]
     Indication: RHEUMATOID ARTHRITIS
     Dosage: 40 MG, 1 IN 2 WK, SUBCUTANEOUS;  40 MG, 1 IN 8 D, SUBCUTANEOUS
     Route: 058
     Dates: start: 20031204, end: 20040901
  2. HUMIRA [Suspect]
     Indication: RHEUMATOID ARTHRITIS
     Dosage: 40 MG, 1 IN 2 WK, SUBCUTANEOUS;  40 MG, 1 IN 8 D, SUBCUTANEOUS
     Route: 058
     Dates: start: 20040901, end: 20041215
  3. PROPACET 100 [Concomitant]
  4. TEMAZEPAM [Concomitant]
  5. BUCINDOLOL HYDROCHLORIDE [Concomitant]
  6. ALENDRONATE SODIUM [Concomitant]
  7. CALCIUM GLUCONATE [Concomitant]
  8. OMEPRAZOLE [Concomitant]
  9. ZOCOR [Concomitant]
  10. ALLERGY SHOT [Concomitant]

REACTIONS (7)
  - ALOPECIA [None]
  - BREAST CANCER [None]
  - DRUG EFFECT DECREASED [None]
  - DRUG INEFFECTIVE [None]
  - DYSPEPSIA [None]
  - RASH [None]
  - VISION BLURRED [None]
